FAERS Safety Report 7408895-4 (Version None)
Quarter: 2011Q2

REPORT INFORMATION
  Report Type: 
  Country: None (occurrence: None)
  Receive Date: 20110412
  Receipt Date: 20110407
  Transmission Date: 20111010
  Serious: Yes (Death, Life-Threatening, Disabling, Other)
  Sender: FDA-Public Use
  Company Number: PHHY2010JP03605

PATIENT
  Sex: Male
  Weight: 57 kg

DRUGS (19)
  1. DIFLUCAN [Concomitant]
     Indication: PROPHYLAXIS
     Dosage: 200 MG, UNK
     Route: 048
     Dates: start: 20090325, end: 20090331
  2. EXJADE [Suspect]
     Indication: IRON OVERLOAD
     Dosage: 1500 MG DAILY
     Route: 048
     Dates: start: 20090805, end: 20090822
  3. BONALON [Concomitant]
     Indication: PROPHYLAXIS
     Dosage: 35 MG, UNK
     Route: 048
     Dates: start: 20090316
  4. LASIX [Concomitant]
     Indication: PROPHYLAXIS
     Dosage: 10 MG, UNK
     Route: 048
     Dates: start: 20090401
  5. PREDONINE [Suspect]
     Dosage: 25 MG, UNK
     Route: 048
     Dates: start: 20080218
  6. VOGLIBOSE [Concomitant]
     Indication: MYELODYSPLASTIC SYNDROME
     Dosage: 0.6 MG, UNK
     Route: 048
     Dates: start: 20090306
  7. ONEALFA [Concomitant]
     Indication: PROPHYLAXIS
     Dosage: 0.25 UG, UNK
     Route: 048
     Dates: start: 20090316
  8. VFEND [Concomitant]
     Indication: PROPHYLAXIS
     Dosage: 300 MG, UNK
     Route: 048
     Dates: start: 20090416
  9. RED BLOOD CELLS, CONCENTRATED [Concomitant]
     Dosage: 10 UNITS
     Dates: start: 20090521, end: 20090616
  10. EXJADE [Suspect]
     Indication: MYELODYSPLASTIC SYNDROME
     Dosage: 1000 MG DAILY
     Route: 048
     Dates: start: 20090218, end: 20090804
  11. ASPARA-CA [Concomitant]
     Indication: PROPHYLAXIS
     Dosage: 1200 MG, UNK
     Route: 048
     Dates: start: 20090316
  12. RED BLOOD CELLS, CONCENTRATED [Concomitant]
     Dosage: 12 UNITS
     Dates: start: 20090617, end: 20090720
  13. BAKTAR [Concomitant]
     Indication: PROPHYLAXIS
     Dosage: 2 DF, UNK
     Route: 048
     Dates: start: 20080218
  14. PARIET [Concomitant]
     Indication: PROPHYLAXIS
     Dosage: 10 MG, UNK
     Route: 048
     Dates: start: 20080218
  15. RED BLOOD CELLS, CONCENTRATED [Concomitant]
     Dosage: 12 UNITS
     Dates: start: 20090218, end: 20090317
  16. RED BLOOD CELLS, CONCENTRATED [Concomitant]
     Dosage: 6 UNITS
     Dates: start: 20090416, end: 20090520
  17. ITRIZOLE [Concomitant]
     Indication: PROPHYLAXIS
     Dosage: 20 ML, UNK
     Route: 048
     Dates: start: 20080316, end: 20090324
  18. RED BLOOD CELLS, CONCENTRATED [Concomitant]
     Dosage: 6 UNITS
     Dates: start: 20090318, end: 20090415
  19. RED BLOOD CELLS, CONCENTRATED [Concomitant]
     Dosage: 9 UNITS
     Dates: start: 20090721, end: 20090819

REACTIONS (7)
  - ESCHERICHIA SEPSIS [None]
  - WHITE BLOOD CELL COUNT DECREASED [None]
  - BRONCHOPULMONARY ASPERGILLOSIS [None]
  - PLATELET COUNT DECREASED [None]
  - ENTEROCOCCAL SEPSIS [None]
  - HYPERGLYCAEMIA [None]
  - RENAL IMPAIRMENT [None]
